FAERS Safety Report 8111454-1 (Version None)
Quarter: 2012Q1

REPORT INFORMATION
  Report Type: 
  Country: None (occurrence: None)
  Receive Date: 20120203
  Receipt Date: 20111229
  Transmission Date: 20120608
  Serious: No
  Sender: FDA-Public Use
  Company Number: US-GLAXOSMITHKLINE-A0959623A

PATIENT
  Sex: Female

DRUGS (5)
  1. LAMICTAL [Suspect]
     Indication: CONVULSION
     Dosage: 350MG TWICE PER DAY
     Route: 048
  2. VIVELLE [Concomitant]
  3. PAXIL [Concomitant]
  4. ORTHO EVRA [Concomitant]
  5. ESTRADIOL [Concomitant]

REACTIONS (1)
  - METRORRHAGIA [None]
